FAERS Safety Report 25961936 (Version 1)
Quarter: 2025Q4

REPORT INFORMATION
  Report Type: Spontaneous
  Country: EU (occurrence: EU)
  Receive Date: 20251027
  Receipt Date: 20251027
  Transmission Date: 20260117
  Serious: Yes (Other)
  Sender: REGENERON
  Company Number: EU-BAYER-2025A138647

PATIENT
  Age: 64 Year
  Sex: Female

DRUGS (2)
  1. EYLEA [Suspect]
     Active Substance: AFLIBERCEPT
     Indication: Product used for unknown indication
     Dosage: 8 MG, ONCE, SOLUTION FOR INJECTION IN PRE-FILLED SYRINGE, 114.3 MG/ML
     Dates: start: 202507, end: 202507
  2. EYLEA [Suspect]
     Active Substance: AFLIBERCEPT
     Dosage: 8 MG, ONCE, SOLUTION FOR INJECTION IN PRE-FILLED SYRINGE, 114.3 MG/ML
     Dates: start: 20251014, end: 20251014

REACTIONS (3)
  - Hypertensive crisis [Unknown]
  - Cerebrovascular accident [Unknown]
  - Rash [Unknown]

NARRATIVE: CASE EVENT DATE: 20250727
